FAERS Safety Report 4357572-5 (Version None)
Quarter: 2004Q2

REPORT INFORMATION
  Report Type: 
  Country: None (occurrence: None)
  Receive Date: 20040512
  Receipt Date: 20040512
  Transmission Date: 20050107
  Serious: Yes (Life-Threatening, Hospitalization)
  Sender: FDA-Public Use
  Company Number: None

PATIENT
  Age: 75 Year
  Weight: 77.7 kg

DRUGS (4)
  1. DIGOXIN [Suspect]
     Dosage: 0.25 MG QD ORAL
     Route: 048
     Dates: start: 20030901, end: 20040303
  2. WARFARIN SODIUM [Concomitant]
  3. DILTIAZEM [Concomitant]
  4. CARVEDILOL [Concomitant]

REACTIONS (9)
  - ANOREXIA [None]
  - BRADYCARDIA [None]
  - DIARRHOEA [None]
  - DIZZINESS POSTURAL [None]
  - DRUG TOXICITY [None]
  - ELECTROCARDIOGRAM ST SEGMENT DEPRESSION [None]
  - RETCHING [None]
  - VOMITING [None]
  - WEIGHT DECREASED [None]
